FAERS Safety Report 7119172-3 (Version None)
Quarter: 2010Q4

REPORT INFORMATION
  Report Type: 
  Country: None (occurrence: None)
  Receive Date: 20101123
  Receipt Date: 20101115
  Transmission Date: 20110411
  Serious: Yes (Death, Other)
  Sender: FDA-Public Use
  Company Number: FR-ROCHE-742755

PATIENT

DRUGS (3)
  1. RIBAVIRIN [Suspect]
     Dosage: MEAN DOSE OF 936 +/- 141 MG/DAY
     Route: 065
  2. PEGINTERFERON ALFA-2A [Suspect]
     Dosage: 179.7 +/- 6.5 MCG/WEEK
     Route: 065
  3. PEGINTERFERON ALFA-2B [Suspect]
     Dosage: MEAN DOSE 1.46 +/- MCG/KG/WEEK
     Route: 065

REACTIONS (8)
  - CACHEXIA [None]
  - DRUG INEFFECTIVE [None]
  - GLIOBLASTOMA [None]
  - HAEMOGLOBIN DECREASED [None]
  - HEPATIC CIRRHOSIS [None]
  - NEUTROPENIA [None]
  - PLATELET COUNT DECREASED [None]
  - SUICIDE ATTEMPT [None]
